FAERS Safety Report 6191322-5 (Version None)
Quarter: 2009Q2

REPORT INFORMATION
  Report Type: 
  Country: None (occurrence: None)
  Receive Date: 20090513
  Receipt Date: 20090513
  Transmission Date: 20091009
  Serious: Yes (Hospitalization)
  Sender: FDA-Public Use
  Company Number: None

PATIENT
  Age: 61 Year
  Sex: Female
  Weight: 77.1115 kg

DRUGS (1)
  1. LISINOPRIL [Suspect]
     Dosage: 1 DAY

REACTIONS (2)
  - SWOLLEN TONGUE [None]
  - THROAT TIGHTNESS [None]
